FAERS Safety Report 5098904-2 (Version None)
Quarter: 2006Q3

REPORT INFORMATION
  Report Type: 
  Country: None (occurrence: None)
  Receive Date: 20060907
  Receipt Date: 20060823
  Transmission Date: 20061208
  Serious: Yes (Hospitalization, Disabling)
  Sender: FDA-Public Use
  Company Number: PHBS2006CO12796

PATIENT
  Age: 11 Year
  Sex: Male
  Weight: 29 kg

DRUGS (1)
  1. VOLTAREN [Suspect]
     Indication: POST-TRAUMATIC PAIN
     Dosage: 75 MG/DAY
     Route: 030
     Dates: start: 20060722, end: 20060722

REACTIONS (5)
  - GAIT DISTURBANCE [None]
  - INJECTION SITE REACTION [None]
  - MONOPLEGIA [None]
  - NERVE INJURY [None]
  - NEURALGIA [None]
